FAERS Safety Report 22010364 (Version 1)
Quarter: 2023Q1

REPORT INFORMATION
  Report Type: Spontaneous
  Country: GB (occurrence: GB)
  Receive Date: 20230220
  Receipt Date: 20230220
  Transmission Date: 20230418
  Serious: Yes (Other)
  Sender: FDA-Public Use
  Company Number: GB-MHRA-TPP22795125C8860895YC1675438977021

PATIENT
  Age: 66 Year
  Sex: Male
  Weight: 82 kg

DRUGS (7)
  1. ATORVASTATIN [Suspect]
     Active Substance: ATORVASTATIN
     Indication: Ill-defined disorder
     Dosage: UNK
     Route: 065
     Dates: start: 20230203
  2. ASPIRIN [Concomitant]
     Active Substance: ASPIRIN
     Indication: Ill-defined disorder
     Dosage: ONE TO BE TAKEN IN THE MORNING
     Route: 065
     Dates: start: 20041203
  3. ATORVASTATIN [Concomitant]
     Active Substance: ATORVASTATIN
     Indication: Ill-defined disorder
     Dosage: TAKE ONE DAILY
     Route: 065
     Dates: start: 20220105, end: 20221222
  4. BISOPROLOL [Concomitant]
     Active Substance: BISOPROLOL
     Indication: Ill-defined disorder
     Dosage: TAKE ONE DAILY
     Route: 065
     Dates: start: 20220105
  5. LANSOPRAZOLE [Concomitant]
     Active Substance: LANSOPRAZOLE
     Indication: Ill-defined disorder
     Dosage: TAKE ONE CAPSULE DAILY
     Route: 065
     Dates: start: 20220106
  6. RAMIPRIL [Concomitant]
     Active Substance: RAMIPRIL
     Indication: Ill-defined disorder
     Dosage: ONE TO BE TAKEN TWICE A DAY
     Route: 065
     Dates: start: 20091215
  7. TICAGRELOR [Concomitant]
     Active Substance: TICAGRELOR
     Indication: Ill-defined disorder
     Dosage: TAKE ONE TWICE DAILY (FOR 12 MONTHS)
     Route: 065
     Dates: start: 20220105

REACTIONS (1)
  - Hepatitis fulminant [Recovered/Resolved]

NARRATIVE: CASE EVENT DATE: 20230203
